FAERS Safety Report 12890542 (Version 1)
Quarter: 2016Q4

REPORT INFORMATION
  Report Type: Spontaneous
  Country: US (occurrence: US)
  Receive Date: 20161027
  Receipt Date: 20161027
  Transmission Date: 20170207
  Serious: No
  Sender: FDA-Public Use
  Company Number: US-JAZZ-2016-US-015604

PATIENT
  Sex: Male

DRUGS (52)
  1. XYREM [Suspect]
     Active Substance: SODIUM OXYBATE
     Indication: NARCOLEPSY
     Dosage: 2.25 G, BID
     Route: 048
     Dates: start: 201507, end: 201508
  2. CITRUCEL [Concomitant]
     Active Substance: METHYLCELLULOSE (4000 MPA.S)
  3. QSYMIA [Concomitant]
     Active Substance: PHENTERMINE HYDROCHLORIDE\TOPIRAMATE
  4. CALCIUM +D [Concomitant]
     Active Substance: CALCIUM\VITAMIN D
  5. ADDERALL [Concomitant]
     Active Substance: AMPHETAMINE ASPARTATE\AMPHETAMINE SULFATE\DEXTROAMPHETAMINE SACCHARATE\DEXTROAMPHETAMINE SULFATE
  6. BUSPIRONE HCL [Concomitant]
     Active Substance: BUSPIRONE HYDROCHLORIDE
  7. KEFLEX [Concomitant]
     Active Substance: CEPHALEXIN
  8. LISINOPRIL. [Concomitant]
     Active Substance: LISINOPRIL
  9. LYRICA [Concomitant]
     Active Substance: PREGABALIN
  10. PREDNISONE. [Concomitant]
     Active Substance: PREDNISONE
  11. PROVIGIL [Concomitant]
     Active Substance: MODAFINIL
  12. RAPAFLO [Concomitant]
     Active Substance: SILODOSIN
  13. PERCOCET [Concomitant]
     Active Substance: ACETAMINOPHEN\OXYCODONE HYDROCHLORIDE
  14. VITAMIN D3 [Concomitant]
     Active Substance: CHOLECALCIFEROL
  15. ERGOCALCIFEROL. [Concomitant]
     Active Substance: ERGOCALCIFEROL
  16. FLONASE [Concomitant]
     Active Substance: FLUTICASONE PROPIONATE
  17. MULTIVITAMINS [Concomitant]
     Active Substance: VITAMINS
  18. VITAMIN B12 [Concomitant]
     Active Substance: CYANOCOBALAMIN
  19. NORCO [Concomitant]
     Active Substance: ACETAMINOPHEN\HYDROCODONE BITARTRATE
  20. TESTOSTERONE CYPIONATE. [Concomitant]
     Active Substance: TESTOSTERONE CYPIONATE
  21. CYCLOBENZAPRINE [Concomitant]
     Active Substance: CYCLOBENZAPRINE
  22. XYREM [Suspect]
     Active Substance: SODIUM OXYBATE
     Dosage: 3 G, BID
     Route: 048
     Dates: start: 201508, end: 201510
  23. GABAPENTIN. [Suspect]
     Active Substance: GABAPENTIN
     Indication: PRODUCT USED FOR UNKNOWN INDICATION
     Route: 048
  24. ALEVE [Concomitant]
     Active Substance: NAPROXEN SODIUM
  25. QUALAQUIN [Concomitant]
     Active Substance: QUININE SULFATE
  26. SILVADENE [Concomitant]
     Active Substance: SILVER SULFADIAZINE
  27. TRAMADOL HCL [Concomitant]
     Active Substance: TRAMADOL HYDROCHLORIDE
  28. ATIVAN [Concomitant]
     Active Substance: LORAZEPAM
  29. NUVIGIL [Concomitant]
     Active Substance: ARMODAFINIL
  30. PRISTIQ EXTENDED-RELEASE [Concomitant]
     Active Substance: DESVENLAFAXINE SUCCINATE
  31. RANITIDINE. [Concomitant]
     Active Substance: RANITIDINE
  32. VIAGRA [Concomitant]
     Active Substance: SILDENAFIL CITRATE
  33. FLOMAX [Concomitant]
     Active Substance: TAMSULOSIN HYDROCHLORIDE
  34. OXCARBAZEPINE. [Concomitant]
     Active Substance: OXCARBAZEPINE
  35. XYREM [Suspect]
     Active Substance: SODIUM OXYBATE
     Dosage: 3.75 G, BID
     Route: 048
     Dates: start: 201510
  36. OXYCODONE HYDROCHLORIDE. [Concomitant]
     Active Substance: OXYCODONE HYDROCHLORIDE
  37. CYMBALTA [Concomitant]
     Active Substance: DULOXETINE HYDROCHLORIDE
  38. IRON [Concomitant]
     Active Substance: IRON
  39. MOBIC [Concomitant]
     Active Substance: MELOXICAM
  40. NEXIUM [Concomitant]
     Active Substance: ESOMEPRAZOLE MAGNESIUM
  41. OMEPRAZOLE. [Concomitant]
     Active Substance: OMEPRAZOLE
  42. PHENTERMINE. [Concomitant]
     Active Substance: PHENTERMINE
  43. SKELAXIN [Concomitant]
     Active Substance: METAXALONE
  44. TYLENOL PM EXTRA STRENGTH [Concomitant]
     Active Substance: ACETAMINOPHEN\DIPHENHYDRAMINE HYDROCHLORIDE
  45. ZANAFLEX [Concomitant]
     Active Substance: TIZANIDINE HYDROCHLORIDE
  46. MODAFINIL. [Concomitant]
     Active Substance: MODAFINIL
  47. TRAMADOL. [Concomitant]
     Active Substance: TRAMADOL
  48. AMOXICILLIN. [Concomitant]
     Active Substance: AMOXICILLIN
  49. CALCIO [Concomitant]
     Active Substance: CALCIUM
  50. CLARITIN-D 12 HOUR [Concomitant]
     Active Substance: LORATADINE\PSEUDOEPHEDRINE SULFATE
  51. LORTAB [Concomitant]
     Active Substance: ACETAMINOPHEN\HYDROCODONE BITARTRATE
  52. NORVASC [Concomitant]
     Active Substance: AMLODIPINE BESYLATE

REACTIONS (4)
  - Abnormal behaviour [Not Recovered/Not Resolved]
  - Dyspnoea [Not Recovered/Not Resolved]
  - Anxiety [Not Recovered/Not Resolved]
  - Depressed mood [Unknown]
